FAERS Safety Report 9291270 (Version 3)
Quarter: 2013Q2

REPORT INFORMATION
  Report Type: Report from Study
  Country: US (occurrence: US)
  Receive Date: 20130515
  Receipt Date: 20130626
  Transmission Date: 20140414
  Serious: Yes (Hospitalization, Other)
  Sender: FDA-Public Use
  Company Number: PHEH2013US010539

PATIENT
  Age: 11 Year
  Sex: Female

DRUGS (15)
  1. TOBI [Suspect]
     Indication: CYSTIC FIBROSIS
     Dosage: 300 MG, BID
     Dates: start: 2009
  2. PULMOZYME [Concomitant]
     Dosage: UNK
  3. ALBUTEROL [Concomitant]
     Dosage: UNK
  4. AZITHROMYCIN [Concomitant]
     Dosage: UNK
  5. CLARITIN [Concomitant]
     Dosage: UNK
  6. CREON [Concomitant]
     Dosage: UNK
  7. NASONEX [Concomitant]
     Dosage: UNK
  8. NOVOLOG [Concomitant]
     Dosage: UNK
  9. MIRALAX [Concomitant]
     Dosage: UNK
  10. PREVACID [Concomitant]
     Dosage: UNK
  11. VITAMIN A [Concomitant]
     Dosage: UNK
  12. VITAMIN D [Concomitant]
     Dosage: UNK
  13. VITAMIN E [Concomitant]
     Dosage: UNK
  14. VITAMIN K [Concomitant]
     Dosage: UNK
  15. LEVEMIR [Concomitant]
     Dosage: UNK

REACTIONS (6)
  - Acoustic stimulation tests abnormal [Not Recovered/Not Resolved]
  - Ear disorder [Not Recovered/Not Resolved]
  - Diabetes mellitus [Not Recovered/Not Resolved]
  - Renal injury [Not Recovered/Not Resolved]
  - Blood creatinine increased [Recovered/Resolved]
  - Infective pulmonary exacerbation of cystic fibrosis [Not Recovered/Not Resolved]
